FAERS Safety Report 12592406 (Version 1)
Quarter: 2016Q3

REPORT INFORMATION
  Report Type: Spontaneous
  Country: US (occurrence: US)
  Receive Date: 20160726
  Receipt Date: 20160726
  Transmission Date: 20161109
  Serious: No
  Sender: FDA-Public Use
  Company Number: US-PFIZER INC-2016228339

PATIENT
  Age: 67 Year
  Sex: Female

DRUGS (10)
  1. CALCIUM [Concomitant]
     Active Substance: CALCIUM
     Dosage: UNK
  2. POTASSIUM [Concomitant]
     Active Substance: POTASSIUM
     Dosage: UNK
  3. COREG [Concomitant]
     Active Substance: CARVEDILOL
     Dosage: 25 MG, 2X/DAY
  4. FENTANYL. [Concomitant]
     Active Substance: FENTANYL
     Dosage: 25 MG, UNK (1 EVERY THREE DAYS)
  5. ASPIRIN. [Concomitant]
     Active Substance: ASPIRIN
     Dosage: UNK UNK, DAILY (SOMETIMES)
  6. SUTENT [Suspect]
     Active Substance: SUNITINIB MALATE
     Indication: SMALL CELL LUNG CANCER
     Dosage: 25 MG, DAILY
     Route: 048
  7. ALBUTEROL. [Concomitant]
     Active Substance: ALBUTEROL
     Dosage: UNK UNK, AS NEEDED (EVERY 4 HOURS)
  8. COZAAR [Concomitant]
     Active Substance: LOSARTAN POTASSIUM
     Dosage: 100 MG, DAILY
  9. SPIRIVA [Concomitant]
     Active Substance: TIOTROPIUM BROMIDE MONOHYDRATE
     Dosage: 1 DF, DAILY (1 DAILY)
  10. SENNA [Concomitant]
     Active Substance: SENNA LEAF\SENNOSIDES\SENNOSIDES A AND B
     Dosage: UNK

REACTIONS (3)
  - Blood sodium decreased [Unknown]
  - Blood chloride decreased [Unknown]
  - Product use issue [Unknown]
